FAERS Safety Report 5836102-2 (Version None)
Quarter: 2008Q3

REPORT INFORMATION
  Report Type: 
  Country: None (occurrence: None)
  Receive Date: 20080806
  Receipt Date: 20080729
  Transmission Date: 20090109
  Serious: Yes (Hospitalization, Other)
  Sender: FDA-Public Use
  Company Number: US-PFIZER INC-2008064421

PATIENT
  Sex: Female
  Weight: 72.6 kg

DRUGS (5)
  1. NEURONTIN [Suspect]
     Indication: NEURALGIA
     Dates: start: 19970101, end: 20070401
  2. LYRICA [Suspect]
     Route: 048
     Dates: start: 20070601, end: 20071015
  3. ULTRAM [Concomitant]
  4. ZANAFLEX [Concomitant]
  5. TOPROL-XL [Concomitant]

REACTIONS (7)
  - ACTIVITIES OF DAILY LIVING IMPAIRED [None]
  - ADVERSE REACTION [None]
  - ANOREXIA [None]
  - BLADDER PROLAPSE [None]
  - MUSCLE ATROPHY [None]
  - OEDEMA [None]
  - PARAESTHESIA [None]
